FAERS Safety Report 8275039-9 (Version None)
Quarter: 2012Q2

REPORT INFORMATION
  Report Type: 
  Country: None (occurrence: None)
  Receive Date: 20120411
  Receipt Date: 20120410
  Transmission Date: 20120825
  Serious: Yes (Hospitalization)
  Sender: FDA-Public Use
  Company Number: PHEH1994US02339

PATIENT
  Sex: Female
  Weight: 53.3 kg

DRUGS (8)
  1. VANCOMYCIN [Concomitant]
     Route: 042
     Dates: start: 19930909, end: 19930910
  2. HYDROCORTISONE [Concomitant]
     Route: 042
     Dates: start: 19930909, end: 19930913
  3. NEORAL [Suspect]
     Dosage: 250 MG, UNK
     Route: 048
     Dates: start: 19930910, end: 19930913
  4. FORTAZ [Concomitant]
     Route: 042
     Dates: start: 19930909, end: 19930910
  5. NEORAL [Suspect]
     Dosage: 250 MG, UNK
     Route: 048
     Dates: start: 19930802
  6. FLAGYL [Concomitant]
     Route: 042
     Dates: start: 19930909, end: 19930910
  7. ZANTAC [Concomitant]
     Route: 042
     Dates: start: 19930909, end: 19930910
  8. PREDNISONE TAB [Concomitant]
     Route: 048
     Dates: start: 19930913

REACTIONS (7)
  - BONE PAIN [None]
  - ABDOMINAL PAIN LOWER [None]
  - CONSTIPATION [None]
  - COLITIS [None]
  - DIARRHOEA [None]
  - PYREXIA [None]
  - FAECALOMA [None]
